FAERS Safety Report 24352719 (Version 1)
Quarter: 2024Q3

REPORT INFORMATION
  Report Type: Spontaneous
  Country: IT (occurrence: IT)
  Receive Date: 20240923
  Receipt Date: 20240923
  Transmission Date: 20241017
  Serious: No
  Sender: ROCHE
  Company Number: None

PATIENT
  Age: 40 Year
  Sex: Female
  Weight: 60.0 kg

DRUGS (3)
  1. TRASTUZUMAB [Suspect]
     Active Substance: TRASTUZUMAB
     Indication: Breast cancer
     Dosage: I CYCLE - START OF THERAPY - THERAPY EVERY 21 DAYS
     Route: 041
     Dates: start: 20230717, end: 20230717
  2. PERTUZUMAB [Suspect]
     Active Substance: PERTUZUMAB
     Indication: Breast cancer
     Dosage: I CYCLE - START OF THERAPY - THERAPY EVERY 21 DAYS
     Route: 065
     Dates: start: 20230717, end: 20230717
  3. DOCETAXEL [Suspect]
     Active Substance: DOCETAXEL\DOCETAXEL ANHYDROUS
     Indication: Breast cancer
     Dosage: I CYCLE - START OF THERAPY - THERAPY EVERY 21 DAYS
     Route: 065
     Dates: start: 20230717, end: 20230717

REACTIONS (5)
  - Mucosal inflammation [Recovering/Resolving]
  - Dermatitis [Recovering/Resolving]
  - Alopecia [Not Recovered/Not Resolved]
  - Diarrhoea [Recovering/Resolving]
  - Skin disorder [Recovering/Resolving]

NARRATIVE: CASE EVENT DATE: 20230718
